FAERS Safety Report 9071379 (Version 1)
Quarter: 2013Q1

REPORT INFORMATION
  Report Type: Spontaneous
  Country: US (occurrence: US)
  Receive Date: 20130206
  Receipt Date: 20130206
  Transmission Date: 20140127
  Serious: No
  Sender: FDA-Public Use
  Company Number: US-ALLERGAN-1210965US

PATIENT
  Age: 50 Year
  Sex: Female

DRUGS (4)
  1. RESTASIS? [Suspect]
     Indication: DRY EYE
     Dosage: 2 GTT, BID
     Route: 047
     Dates: start: 20120731, end: 20120806
  2. LEVOXYL [Concomitant]
     Indication: THYROID DISORDER
     Route: 048
  3. ZEGERID                            /00661201/ [Concomitant]
     Indication: DYSPEPSIA
     Route: 048
  4. IBUPROFEN [Concomitant]
     Indication: PRODUCT USED FOR UNKNOWN INDICATION

REACTIONS (2)
  - Insomnia [Recovered/Resolved]
  - Palpitations [Recovered/Resolved]
